FAERS Safety Report 17436126 (Version 2)
Quarter: 2020Q4

REPORT INFORMATION
  Report Type: Spontaneous
  Country: JP (occurrence: JP)
  Receive Date: 20200219
  Receipt Date: 20201106
  Transmission Date: 20210113
  Serious: Yes (Other)
  Sender: FDA-Public Use
  Company Number: JP-OTSUKA-2019_036636

PATIENT
  Sex: Male
  Weight: 72 kg

DRUGS (70)
  1. JAKAVI [Concomitant]
     Active Substance: RUXOLITINIB
     Indication: ACUTE GRAFT VERSUS HOST DISEASE
     Dosage: 4 DF, DAILY DOSE
     Route: 048
     Dates: start: 20180409, end: 20180906
  2. SOLDEM 1 [Concomitant]
     Active Substance: DEXTROSE\SODIUM CHLORIDE\SODIUM LACTATE
     Indication: PRODUCT USED FOR UNKNOWN INDICATION
     Dosage: 1 DF, DAILY DOSE
     Route: 041
     Dates: start: 20180409, end: 20180906
  3. GLUCOSE [Concomitant]
     Active Substance: DEXTROSE
     Indication: PRODUCT USED FOR UNKNOWN INDICATION
     Dosage: 3 DF, DAILY DOSE
     Route: 041
     Dates: start: 20180420, end: 20180906
  4. ACICLOVIR [Concomitant]
     Active Substance: ACYCLOVIR
     Indication: PRODUCT USED FOR UNKNOWN INDICATION
     Dosage: 1 DF, DAILY DOSE
     Route: 041
     Dates: start: 20180422, end: 20180817
  5. MIDAZOLAM. [Concomitant]
     Active Substance: MIDAZOLAM
     Indication: PRODUCT USED FOR UNKNOWN INDICATION
     Dosage: 1 DF, DAILY DOSE
     Route: 042
     Dates: start: 20180517, end: 20180816
  6. MAGNESIUM OXIDE. [Concomitant]
     Active Substance: MAGNESIUM OXIDE
     Indication: PRODUCT USED FOR UNKNOWN INDICATION
     Dosage: 6 DF, DAILY DOSE
     Route: 048
     Dates: start: 20180409, end: 20180421
  7. URSODEOXYCHOLIC ACID [Concomitant]
     Active Substance: URSODIOL
     Indication: PRODUCT USED FOR UNKNOWN INDICATION
     Dosage: 6 DF, DAILY DOSE
     Route: 048
     Dates: start: 20180410, end: 20180801
  8. AMLODIPINE [Concomitant]
     Active Substance: AMLODIPINE BESYLATE
     Indication: PRODUCT USED FOR UNKNOWN INDICATION
     Dosage: 2 DF, DAILY DOSE
     Route: 048
     Dates: start: 20180513, end: 20180605
  9. FLAGYL [Concomitant]
     Active Substance: METRONIDAZOLE\METRONIDAZOLE HYDROCHLORIDE
     Indication: PRODUCT USED FOR UNKNOWN INDICATION
     Dosage: 6 DF, DAILY DOSE
     Route: 048
     Dates: start: 20180514, end: 20180531
  10. SODIUM CHLORIDE. [Concomitant]
     Active Substance: SODIUM CHLORIDE
     Indication: PRODUCT USED FOR UNKNOWN INDICATION
     Dosage: 2 DF, DAILY DOSE
     Route: 042
     Dates: start: 20180409, end: 20180906
  11. KCL CORRECTIVE [Concomitant]
     Indication: PRODUCT USED FOR UNKNOWN INDICATION
     Dosage: 1 DF, DAILY DOSE
     Route: 041
     Dates: start: 20180425, end: 20180906
  12. METOCLOPRAMIDE. [Concomitant]
     Active Substance: METOCLOPRAMIDE
     Indication: PRODUCT USED FOR UNKNOWN INDICATION
     Dosage: 1 DF, DAILY DOSE
     Route: 042
     Dates: start: 20180609, end: 20180906
  13. DAIPHEN [Concomitant]
     Active Substance: SULFAMETHOXAZOLE\TRIMETHOPRIM
     Indication: PRODUCT USED FOR UNKNOWN INDICATION
     Dosage: 1 DF, DAILY DOSE
     Route: 048
     Dates: start: 20180409, end: 20180801
  14. EMEND [Concomitant]
     Active Substance: APREPITANT
     Indication: PRODUCT USED FOR UNKNOWN INDICATION
     Dosage: 1 DF, DAILY DOSE
     Route: 048
     Dates: start: 20180411, end: 20180414
  15. LEVOFLOXACIN HEMIHYDRATE [Concomitant]
     Active Substance: LEVOFLOXACIN
     Indication: PRODUCT USED FOR UNKNOWN INDICATION
     Dosage: 1 DF, DAILY DOSE
     Route: 048
     Dates: start: 20180410, end: 20180415
  16. SOLDEM 3A [Concomitant]
     Active Substance: CARBOHYDRATES\POTASSIUM CHLORIDE\SODIUM CHLORIDE\SODIUM LACTATE
     Indication: PRODUCT USED FOR UNKNOWN INDICATION
     Dosage: 1 DF, DAILY DOSE
     Route: 041
     Dates: start: 20180420, end: 20180823
  17. SOL-MELCORT [Concomitant]
     Active Substance: METHYLPREDNISOLONE SODIUM SUCCINATE
     Indication: PRODUCT USED FOR UNKNOWN INDICATION
     Dosage: 1 DF, DAILY DOSE
     Route: 041
     Dates: start: 20180417, end: 20180805
  18. WATER FOR INJECTION [Concomitant]
     Active Substance: WATER
     Indication: PRODUCT USED FOR UNKNOWN INDICATION
     Dosage: 1 DF, DAILY DOSE
     Route: 041
     Dates: start: 20180415, end: 20180416
  19. ACELIO [Concomitant]
     Active Substance: ACETAMINOPHEN
     Indication: PRODUCT USED FOR UNKNOWN INDICATION
     Dosage: 3 DF, DAILY DOSE
     Route: 042
     Dates: start: 20180416, end: 20180906
  20. SODIUM CHLORIDE. [Concomitant]
     Active Substance: SODIUM CHLORIDE
     Indication: PRODUCT USED FOR UNKNOWN INDICATION
     Dosage: 1 DF, DAILY DOSE
     Route: 041
     Dates: start: 20180525, end: 20180601
  21. CERCINE [Concomitant]
     Active Substance: DIAZEPAM
     Indication: PRODUCT USED FOR UNKNOWN INDICATION
     Dosage: 2 DF, DAILY DOSE
     Route: 042
     Dates: start: 20180605, end: 20180730
  22. CALCICOL [Concomitant]
     Active Substance: CALCIUM GLUCONATE
     Indication: PRODUCT USED FOR UNKNOWN INDICATION
     Dosage: 2 DF, DAILY DOSE
     Route: 042
     Dates: start: 20180610, end: 20180817
  23. ATARAX-P [Concomitant]
     Active Substance: HYDROXYZINE HYDROCHLORIDE
     Indication: PRODUCT USED FOR UNKNOWN INDICATION
     Dosage: 1 DF, DAILY DOSE
     Route: 041
     Dates: start: 20180618, end: 20180906
  24. VALTREX [Concomitant]
     Active Substance: VALACYCLOVIR HYDROCHLORIDE
     Indication: PRODUCT USED FOR UNKNOWN INDICATION
     Dosage: 6 DF, DAILY DOSE
     Route: 048
     Dates: start: 20180410, end: 20180723
  25. FUROSEMIDE. [Concomitant]
     Active Substance: FUROSEMIDE
     Indication: PRODUCT USED FOR UNKNOWN INDICATION
     Dosage: 0.5 DF, DAILY DOSE
     Route: 048
     Dates: start: 20180519, end: 20180605
  26. BROTIZOLAM [Concomitant]
     Active Substance: BROTIZOLAM
     Indication: PRODUCT USED FOR UNKNOWN INDICATION
     Dosage: 1 DF, DAILY DOSE
     Route: 048
     Dates: start: 20180409, end: 20180906
  27. BUSULFEX [Suspect]
     Active Substance: BUSULFAN
     Indication: STEM CELL TRANSPLANT
     Dosage: 4 DF, DAILY DOSE
     Route: 041
     Dates: start: 20180410, end: 20180413
  28. MUCOSTA TABLETS 100MG [Concomitant]
     Active Substance: REBAMIPIDE
     Indication: PRODUCT USED FOR UNKNOWN INDICATION
     Dosage: 3 DF, DAILY DOSE
     Route: 048
     Dates: start: 20180529, end: 20180605
  29. POLARAMINE [Concomitant]
     Active Substance: DEXCHLORPHENIRAMINE MALEATE
     Indication: PRODUCT USED FOR UNKNOWN INDICATION
     Dosage: 1 DF, DAILY DOSE
     Route: 042
     Dates: start: 20180409, end: 20180906
  30. ELNEOPA NO.2 [Concomitant]
     Active Substance: AMINO ACIDS\DEXTROSE\ELECTROLYTES NOS\MINERALS\VITAMINS
     Indication: PRODUCT USED FOR UNKNOWN INDICATION
     Dosage: 1 DF, UNK
     Route: 041
     Dates: start: 20180409, end: 20180906
  31. ELNEOPA NO.2 [Concomitant]
     Active Substance: AMINO ACIDS\DEXTROSE\ELECTROLYTES NOS\MINERALS\VITAMINS
     Indication: PRODUCT USED FOR UNKNOWN INDICATION
     Dosage: 1 DF, DAILY DOSE
     Route: 041
     Dates: start: 20180409, end: 20180706
  32. SEISHOKU [Concomitant]
     Active Substance: SODIUM CHLORIDE
     Indication: PRODUCT USED FOR UNKNOWN INDICATION
     Dosage: 2 DF, DAILY DOSE
     Route: 041
     Dates: start: 20180415, end: 20180906
  33. LASIX [Concomitant]
     Active Substance: FUROSEMIDE
     Indication: PRODUCT USED FOR UNKNOWN INDICATION
     Dosage: 1 DF, DAILY DOSE
     Route: 041
     Dates: start: 20180420, end: 20180906
  34. DENOSINE [Concomitant]
     Indication: PRODUCT USED FOR UNKNOWN INDICATION
     Dosage: 1 DF, DAILY DOSE
     Route: 041
     Dates: start: 20180504, end: 20180805
  35. FEBURIC [Concomitant]
     Active Substance: FEBUXOSTAT
     Indication: PRODUCT USED FOR UNKNOWN INDICATION
     Dosage: 1 DF, DAILY DOSE
     Route: 048
     Dates: start: 20180409, end: 20180421
  36. ENALAPRIL MALEATE. [Concomitant]
     Active Substance: ENALAPRIL MALEATE
     Indication: PRODUCT USED FOR UNKNOWN INDICATION
     Dosage: 2 DF, DAILY DOSE
     Route: 048
     Dates: start: 20180703, end: 20180801
  37. FLUDARA [Suspect]
     Active Substance: FLUDARABINE PHOSPHATE
     Indication: STEM CELL TRANSPLANT
     Dosage: 2 DF, DAILY DOSE
     Route: 041
     Dates: start: 20180410, end: 20180415
  38. CANCIDAS [Concomitant]
     Active Substance: CASPOFUNGIN ACETATE
     Indication: PRODUCT USED FOR UNKNOWN INDICATION
     Dosage: 1 DF, DAILY DOSE
     Route: 041
     Dates: start: 20180410, end: 20180817
  39. GLUCOSE [Concomitant]
     Active Substance: DEXTROSE
     Indication: PRODUCT USED FOR UNKNOWN INDICATION
     Dosage: 1 DF, DAILY DOSE
     Route: 041
     Dates: start: 20180415, end: 20180416
  40. BFLUID [Concomitant]
     Active Substance: AMINO ACIDS\DEXTROSE\ELECTROLYTES NOS\VITAMINS
     Indication: PRODUCT USED FOR UNKNOWN INDICATION
     Dosage: 1 DF, DAILY DOSE
     Route: 041
     Dates: start: 20180520
  41. INTRALIPOS [Concomitant]
     Active Substance: SOYBEAN OIL
     Indication: PRODUCT USED FOR UNKNOWN INDICATION
     Dosage: 1 DF, DAILY DOSE
     Route: 041
     Dates: start: 20180531
  42. VENOGLOBULIN IH [Concomitant]
     Active Substance: HUMAN IMMUNOGLOBULIN G
     Indication: PRODUCT USED FOR UNKNOWN INDICATION
     Dosage: 1 DF, DAILY DOSE
     Route: 041
     Dates: start: 20180605, end: 20180607
  43. E KEPPRA [Concomitant]
     Active Substance: LEVETIRACETAM
     Indication: PRODUCT USED FOR UNKNOWN INDICATION
     Dosage: 2 DF, DAILY DOSE
     Route: 041
     Dates: start: 20180605, end: 20180906
  44. PROGRAF [Concomitant]
     Active Substance: TACROLIMUS
     Indication: PRODUCT USED FOR UNKNOWN INDICATION
     Dosage: 2 DF, DAILY DOSE
     Route: 048
     Dates: start: 20180522, end: 20180605
  45. CALONAL [Concomitant]
     Active Substance: ACETAMINOPHEN
     Indication: PRODUCT USED FOR UNKNOWN INDICATION
     Dosage: 2 DF, DAILY DOSE
     Route: 048
     Dates: start: 20180409, end: 20180906
  46. HEPARIN NA LOCK [Concomitant]
     Active Substance: HEPARIN SODIUM
     Indication: PRODUCT USED FOR UNKNOWN INDICATION
     Dosage: 2 DF, DAILY DOSE
     Route: 042
     Dates: start: 20180409, end: 20180906
  47. DALTEPARIN NA [Concomitant]
     Active Substance: DALTEPARIN SODIUM
     Indication: PRODUCT USED FOR UNKNOWN INDICATION
     Dosage: 1 DF, DAILY DOSE
     Route: 041
     Dates: start: 20180409, end: 20180822
  48. PREDONINE [Concomitant]
     Active Substance: PREDNISOLONE
     Indication: PRODUCT USED FOR UNKNOWN INDICATION
     Dosage: 1-4 DF, DAILY DOSE
     Route: 041
     Dates: start: 20180418, end: 20180906
  49. HUMULIN R [Concomitant]
     Active Substance: INSULIN HUMAN
     Indication: PRODUCT USED FOR UNKNOWN INDICATION
     Dosage: SMALL AMOUNT, DAILY DOSE
     Route: 003
     Dates: start: 20180417, end: 20180906
  50. GLUCOSE [Concomitant]
     Active Substance: DEXTROSE
     Indication: PRODUCT USED FOR UNKNOWN INDICATION
     Dosage: 2 DF, DAILY DOSE
     Route: 042
     Dates: start: 20180421, end: 20180906
  51. SOL-MELCORT [Concomitant]
     Active Substance: METHYLPREDNISOLONE SODIUM SUCCINATE
     Indication: PRODUCT USED FOR UNKNOWN INDICATION
     Dosage: 1 DF, DAILY DOSE
     Route: 041
     Dates: start: 20180615, end: 20180814
  52. NAIXAN [Concomitant]
     Active Substance: NAPROXEN SODIUM
     Indication: PRODUCT USED FOR UNKNOWN INDICATION
     Dosage: 2 DF, DAILY DOSE
     Route: 048
     Dates: start: 20180409, end: 20180414
  53. EMEND [Concomitant]
     Active Substance: APREPITANT
     Indication: PRODUCT USED FOR UNKNOWN INDICATION
     Dosage: 1 DF, DAILY DOSE
     Route: 048
     Dates: start: 20180409
  54. ALLOID G [Concomitant]
     Active Substance: SODIUM ALGINATE
     Indication: PRODUCT USED FOR UNKNOWN INDICATION
     Dosage: 60 ML, DAILY DOSE
     Route: 048
     Dates: start: 20180718, end: 20180801
  55. PROGRAF [Concomitant]
     Active Substance: TACROLIMUS
     Indication: PRODUCT USED FOR UNKNOWN INDICATION
     Dosage: 1 DF, DAILY DOSE
     Route: 041
     Dates: start: 20180416, end: 20180906
  56. GLUCOSE [Concomitant]
     Active Substance: DEXTROSE
     Indication: PRODUCT USED FOR UNKNOWN INDICATION
     Dosage: 2 DF, DAILY DOSE
     Route: 042
     Dates: start: 20180421, end: 20180906
  57. FOSTOIN [Concomitant]
     Active Substance: FOSPHENYTOIN SODIUM
     Indication: PRODUCT USED FOR UNKNOWN INDICATION
     Dosage: 2 DF, DAILY DOSE
     Route: 041
     Dates: start: 20180605, end: 20180729
  58. BARACLUDE [Concomitant]
     Active Substance: ENTECAVIR
     Indication: PRODUCT USED FOR UNKNOWN INDICATION
     Dosage: 1 DF, DAILY DOSE
     Route: 048
     Dates: start: 20180409, end: 20180904
  59. NEXIUM [Concomitant]
     Active Substance: ESOMEPRAZOLE MAGNESIUM
     Indication: PRODUCT USED FOR UNKNOWN INDICATION
     Dosage: 1 DF, DAILY DOSE
     Route: 048
     Dates: start: 20180409, end: 20180801
  60. PREDONINE [Concomitant]
     Active Substance: PREDNISOLONE
     Indication: PRODUCT USED FOR UNKNOWN INDICATION
     Dosage: 1-12 DF, DAILY DOSE
     Route: 048
     Dates: start: 20180409, end: 20180801
  61. HYALURONATE NA [Concomitant]
     Active Substance: HYALURONATE SODIUM
     Indication: PRODUCT USED FOR UNKNOWN INDICATION
     Dosage: UNK UNK, BID
     Route: 047
     Dates: start: 20180509, end: 20180608
  62. ALKERAN [Suspect]
     Active Substance: MELPHALAN
     Indication: STEM CELL TRANSPLANT
     Dosage: 2 DF, DAILY DOSE
     Route: 041
     Dates: start: 20180414, end: 20180415
  63. MAGNESIUM SULFATE. [Concomitant]
     Active Substance: MAGNESIUM SULFATE
     Indication: PRODUCT USED FOR UNKNOWN INDICATION
     Dosage: 1 DF, DAILY DOSE
     Route: 041
     Dates: start: 20180425, end: 20180906
  64. SODIUM CHLORIDE. [Concomitant]
     Active Substance: SODIUM CHLORIDE
     Indication: PRODUCT USED FOR UNKNOWN INDICATION
     Dosage: 1 DF, DAILY DOSE
     Route: 041
     Dates: start: 20180417, end: 20180906
  65. THYMOGLOBULINE [Concomitant]
     Active Substance: LAPINE T-LYMPHOCYTE IMMUNE GLOBULIN
     Indication: PRODUCT USED FOR UNKNOWN INDICATION
     Dosage: 4 DF, DAILY DOSE
     Route: 041
     Dates: start: 20180415, end: 20180416
  66. CEFEPIME HYDROCHLORIDE. [Concomitant]
     Active Substance: CEFEPIME HYDROCHLORIDE
     Indication: PRODUCT USED FOR UNKNOWN INDICATION
     Dosage: 4 DF, DAILY DOSE
     Route: 041
     Dates: start: 20180415, end: 20180906
  67. OMEPRAZOLE. [Concomitant]
     Active Substance: OMEPRAZOLE
     Indication: PRODUCT USED FOR UNKNOWN INDICATION
     Dosage: 2 DF, DAILY DOSE
     Route: 042
     Dates: start: 20180421, end: 20180906
  68. VFEND [Concomitant]
     Active Substance: VORICONAZOLE
     Indication: PRODUCT USED FOR UNKNOWN INDICATION
     Dosage: 6 DF, DAILY DOSE
     Route: 048
     Dates: start: 20180409, end: 20180617
  69. PROGRAF [Concomitant]
     Active Substance: TACROLIMUS
     Indication: PRODUCT USED FOR UNKNOWN INDICATION
     Dosage: 4 DF, DAILY DOSE
     Route: 048
     Dates: start: 20180520, end: 20180605
  70. KENALOG [Concomitant]
     Active Substance: TRIAMCINOLONE ACETONIDE
     Indication: PRODUCT USED FOR UNKNOWN INDICATION
     Dosage: QS, DAILY DOSE
     Route: 061
     Dates: start: 20180703, end: 20180730

REACTIONS (1)
  - Encephalitis viral [Unknown]
